FAERS Safety Report 5999851-1 (Version None)
Quarter: 2008Q4

REPORT INFORMATION
  Report Type: 
  Country: None (occurrence: None)
  Receive Date: 20081215
  Receipt Date: 20081203
  Transmission Date: 20090506
  Serious: Yes (Hospitalization)
  Sender: FDA-Public Use
  Company Number: DE-ELI_LILLY_AND_COMPANY-DE200811002840

PATIENT
  Sex: Male

DRUGS (5)
  1. SOMATROPIN [Suspect]
     Indication: GROWTH HORMONE DEFICIENCY
     Dosage: 0.6 MG, DAILY (1/D)
     Dates: start: 20041228
  2. SOMATROPIN [Suspect]
     Dosage: 0.8 MG, DAILY (1/D)
     Dates: start: 20060626, end: 20060627
  3. HYDROCORTISONE [Concomitant]
     Dosage: 10 MG, DAILY (1/D)
     Dates: start: 20020816
  4. LEVOTHYROXINE SODIUM [Concomitant]
     Dosage: 50 UG, DAILY (1/D)
     Dates: start: 20020816
  5. MINIRIN [Concomitant]
     Dosage: 20 UG, 2/D
     Dates: start: 20020816

REACTIONS (1)
  - CRANIOPHARYNGIOMA [None]
